FAERS Safety Report 25094068 (Version 2)
Quarter: 2025Q2

REPORT INFORMATION
  Report Type: Spontaneous
  Country: US (occurrence: US)
  Receive Date: 20250319
  Receipt Date: 20250425
  Transmission Date: 20250716
  Serious: No
  Sender: CIPLA
  Company Number: US-CIPLA LTD.-2025US02900

PATIENT

DRUGS (2)
  1. BUPROPION [Suspect]
     Active Substance: BUPROPION
     Indication: Depressive symptom
     Route: 048
  2. BUPROPION [Suspect]
     Active Substance: BUPROPION
     Route: 048
     Dates: start: 2024

REACTIONS (5)
  - Symptom recurrence [Unknown]
  - Drug ineffective [Unknown]
  - Product substitution issue [Unknown]
  - Depressive symptom [Unknown]
  - Therapeutic response shortened [Unknown]
